FAERS Safety Report 17410495 (Version 1)
Quarter: 2020Q1

REPORT INFORMATION
  Report Type: Report from Study
  Country: IN (occurrence: IN)
  Receive Date: 20200212
  Receipt Date: 20200212
  Transmission Date: 20200409
  Serious: Yes (Other)
  Sender: FDA-Public Use
  Company Number: IN-MYLANLABS-2020M1015992

PATIENT
  Sex: Male

DRUGS (7)
  1. TOPOTECAN [Suspect]
     Active Substance: TOPOTECAN HYDROCHLORIDE
     Dosage: ADJUNCT TREATMENT; ADMINISTERED FOR 2 CYCLES
  2. VINCRISTINE [Suspect]
     Active Substance: VINCRISTINE
     Indication: CONGENITAL RETINOBLASTOMA
     Dosage: ADJUNCT TREATMENT; VEC REGIMEN; ADMINISTERED FOR 3 CYCLES
     Route: 065
  3. TOPOTECAN [Suspect]
     Active Substance: TOPOTECAN HYDROCHLORIDE
     Indication: CONGENITAL RETINOBLASTOMA
     Dosage: ADMINISTERED FOR 2 CYCLES
     Route: 013
  4. MELPHALAN. [Suspect]
     Active Substance: MELPHALAN
     Dosage: ADJUNCT TREATMENT; ADMINISTERED FOR 2 CYCLES
  5. ETOPOSIDE. [Suspect]
     Active Substance: ETOPOSIDE
     Indication: CONGENITAL RETINOBLASTOMA
     Dosage: ADJUNCT TREATMENT; VEC REGIMEN; ADMINISTERED FOR 3 CYCLES
     Route: 065
  6. CARBOPLATIN. [Suspect]
     Active Substance: CARBOPLATIN
     Indication: CONGENITAL RETINOBLASTOMA
     Dosage: ADJUNCT TREATMENT; VEC REGIMEN; ADMINISTERED FOR 3 CYCLES
     Route: 065
  7. MELPHALAN. [Suspect]
     Active Substance: MELPHALAN
     Indication: CONGENITAL RETINOBLASTOMA
     Dosage: ADMINISTERED FOR 4 CYCLES
     Route: 013

REACTIONS (1)
  - Arterial stenosis [Recovered/Resolved]
